FAERS Safety Report 8930487 (Version 1)
Quarter: 2012Q4

REPORT INFORMATION
  Report Type: 
  Country: US (occurrence: US)
  Receive Date: 20121128
  Receipt Date: 20121128
  Transmission Date: 20130627
  Serious: Yes (Hospitalization, Other)
  Sender: FDA-Public Use
  Company Number: US-009507513-2012SP006354

PATIENT

DRUGS (1)
  1. NUVARING [Suspect]
     Indication: CONTRACEPTION
     Dates: start: 2007, end: 20100203

REACTIONS (9)
  - Left ventricular hypertrophy [Unknown]
  - Pulmonary embolism [Unknown]
  - Pyrexia [Unknown]
  - Back pain [Unknown]
  - Pulmonary infarction [Unknown]
  - Thyroid neoplasm [Unknown]
  - Haemangioma of liver [Unknown]
  - Gastrooesophageal reflux disease [Unknown]
  - Pleuritic pain [Unknown]
